FAERS Safety Report 9727152 (Version 5)
Quarter: 2014Q1

REPORT INFORMATION
  Report Type: Spontaneous
  Country: US (occurrence: US)
  Receive Date: 20131203
  Receipt Date: 20140212
  Transmission Date: 20141002
  Serious: Yes (Hospitalization, Other)
  Sender: FDA-Public Use
  Company Number: US-B.I. PHARMACEUTICALS,INC./RIDGEFIELD-2013-BI-39388BP

PATIENT
  Sex: Male
  Weight: 54 kg

DRUGS (2)
  1. COMBIVENT [Suspect]
     Indication: CHRONIC OBSTRUCTIVE PULMONARY DISEASE
     Dosage: DOSE PER APPLICATION: 20 MCG / 100 MCG; DAILY DOSE: 80MCG/400MCG
     Route: 055
  2. COMBIVENT CFC [Concomitant]
     Indication: CHRONIC OBSTRUCTIVE PULMONARY DISEASE
     Dosage: DOSE PER APPLICATION: 18MCG/103MCG; DAILY DOSE: 144MCG/824MCG
     Route: 055

REACTIONS (3)
  - Lung neoplasm malignant [Unknown]
  - Drug prescribing error [Not Recovered/Not Resolved]
  - Product quality issue [Unknown]
